FAERS Safety Report 5900840-3 (Version None)
Quarter: 2008Q3

REPORT INFORMATION
  Report Type: 
  Country: None (occurrence: None)
  Receive Date: 20080929
  Receipt Date: 20080917
  Transmission Date: 20090109
  Serious: Yes (Hospitalization)
  Sender: FDA-Public Use
  Company Number: JP-AVENTIS-200812943JP

PATIENT
  Age: 74 Year
  Sex: Male
  Weight: 52.05 kg

DRUGS (48)
  1. AFLIBERCEPT [Suspect]
     Route: 041
     Dates: start: 20080814, end: 20080814
  2. DOCETAXEL [Suspect]
     Route: 041
     Dates: start: 20080814, end: 20080814
  3. PRIMPERAN                          /00041901/ [Concomitant]
     Dates: start: 20080704, end: 20080906
  4. MOHRUS [Concomitant]
     Dates: start: 20080619, end: 20080701
  5. MOHRUS [Concomitant]
     Dates: start: 20080725, end: 20080729
  6. MOHRUS [Concomitant]
     Dates: start: 20080811
  7. ISODINE [Concomitant]
     Dates: start: 20080730
  8. HACHIAZULE                         /00317302/ [Concomitant]
     Dates: start: 20080627, end: 20080730
  9. HACHIAZULE                         /00317302/ [Concomitant]
     Dates: start: 20080817, end: 20080826
  10. HACHIAZULE                         /00317302/ [Concomitant]
     Dates: start: 20080906
  11. PRAVASTATIN SODIUM [Concomitant]
     Dates: start: 19990101
  12. RANITIDINE HYDROCHLORIDE [Concomitant]
     Dates: start: 20080526, end: 20080624
  13. RANITIDINE HYDROCHLORIDE [Concomitant]
     Dates: start: 20080715, end: 20080721
  14. RANITIDINE HYDROCHLORIDE [Concomitant]
     Dates: start: 20080813, end: 20080820
  15. DEXAMETHASONE [Concomitant]
     Dates: start: 20080607, end: 20080616
  16. DEXAMETHASONE [Concomitant]
     Route: 048
     Dates: start: 20080617, end: 20080617
  17. DEXAMETHASONE [Concomitant]
     Route: 048
     Dates: start: 20080618, end: 20080618
  18. DEXAMETHASONE [Concomitant]
     Route: 048
     Dates: start: 20080618, end: 20080618
  19. DEXAMETHASONE [Concomitant]
     Route: 048
     Dates: start: 20080619, end: 20080619
  20. DEXAMETHASONE [Concomitant]
     Dates: start: 20080625, end: 20080701
  21. DEXAMETHASONE [Concomitant]
     Route: 048
     Dates: start: 20080715, end: 20080715
  22. DEXAMETHASONE [Concomitant]
     Route: 048
     Dates: start: 20080716, end: 20080716
  23. DEXAMETHASONE [Concomitant]
     Route: 048
     Dates: start: 20080716, end: 20080716
  24. DEXAMETHASONE [Concomitant]
     Route: 048
     Dates: start: 20080717, end: 20080717
  25. DEXAMETHASONE [Concomitant]
     Route: 048
     Dates: start: 20080813, end: 20080813
  26. DEXAMETHASONE [Concomitant]
     Route: 048
     Dates: start: 20080814, end: 20080814
  27. DEXAMETHASONE [Concomitant]
     Route: 048
     Dates: start: 20080814, end: 20080814
  28. DEXAMETHASONE [Concomitant]
     Route: 048
     Dates: start: 20080815, end: 20080815
  29. LENOGRASTIM [Concomitant]
     Dates: start: 20080624, end: 20080627
  30. LENOGRASTIM [Concomitant]
     Dates: start: 20080723, end: 20080726
  31. LENOGRASTIM [Concomitant]
     Dates: start: 20080821, end: 20080823
  32. ACETAMINOPHEN [Concomitant]
     Dates: start: 20080712, end: 20080712
  33. ACETAMINOPHEN [Concomitant]
     Dates: start: 20080722, end: 20080812
  34. ANTIBIOTICS-RESISTANT LACTIC ACID BACTERIAE [Concomitant]
     Dates: start: 20080626
  35. ANTIBIOTICS-RESISTANT LACTIC ACID BACTERIAE [Concomitant]
     Dates: end: 20080725
  36. ANTIBIOTICS-RESISTANT LACTIC ACID BACTERIAE [Concomitant]
     Dates: start: 20080811, end: 20080829
  37. ANTIBIOTICS-RESISTANT LACTIC ACID BACTERIAE [Concomitant]
     Dates: start: 20080912
  38. EPINEPHRINE [Concomitant]
     Dates: start: 20080629, end: 20080703
  39. SORBITOL LACTATED RINGER'S [Concomitant]
     Dates: start: 20080823, end: 20080823
  40. ZOLPIDEM TARTRATE [Concomitant]
     Dates: start: 20080604, end: 20080629
  41. ZOLPIDEM TARTRATE [Concomitant]
     Dates: start: 20080707, end: 20080708
  42. ZOLPIDEM TARTRATE [Concomitant]
     Dates: start: 20080715, end: 20080729
  43. ZOLPIDEM TARTRATE [Concomitant]
     Dates: start: 20080813, end: 20080826
  44. ZOLPIDEM TARTRATE [Concomitant]
     Dates: start: 20080916
  45. NIFEDIPINE [Concomitant]
     Route: 048
     Dates: start: 20080630, end: 20080630
  46. LEVOFLOXACIN [Concomitant]
     Dates: start: 20080723, end: 20080807
  47. ALBUMIN TANNATE [Concomitant]
     Dates: start: 20080822, end: 20080822
  48. SCOPOLAMINE BUTHYLBROMIDE [Concomitant]
     Dates: start: 20080823, end: 20080823

REACTIONS (1)
  - PNEUMOTHORAX [None]
